FAERS Safety Report 23712050 (Version 1)
Quarter: 2024Q2

REPORT INFORMATION
  Report Type: Spontaneous
  Country: US (occurrence: None)
  Receive Date: 20240404
  Receipt Date: 20240404
  Transmission Date: 20240715
  Serious: Yes (Hospitalization)
  Sender: FDA-Public Use
  Company Number: None

PATIENT
  Age: 79 Year
  Sex: Male
  Weight: 99 kg

DRUGS (9)
  1. TRULICITY [Suspect]
     Active Substance: DULAGLUTIDE
     Indication: Diabetes mellitus
  2. GLIPIZIDE [Concomitant]
     Active Substance: GLIPIZIDE
  3. METFORMIN [Concomitant]
     Active Substance: METFORMIN HYDROCHLORIDE
  4. METOPROLOL SUCCINATE [Concomitant]
     Active Substance: METOPROLOL SUCCINATE
  5. VALSARTAN [Concomitant]
     Active Substance: VALSARTAN
  6. XARELTO [Concomitant]
     Active Substance: RIVAROXABAN
  7. ETHYL [Concomitant]
  8. ASPIRIN [Concomitant]
     Active Substance: ASPIRIN
  9. MAGNESIUM [Concomitant]
     Active Substance: MAGNESIUM

REACTIONS (10)
  - Rash [None]
  - Drug ineffective [None]
  - Pruritus [None]
  - Mood swings [None]
  - Irritability [None]
  - Hypoglycaemia [None]
  - Flatulence [None]
  - Dyspepsia [None]
  - Fatigue [None]
  - Weight increased [None]

NARRATIVE: CASE EVENT DATE: 20240130
